FAERS Safety Report 8237574-9 (Version None)
Quarter: 2012Q1

REPORT INFORMATION
  Report Type: 
  Country: None (occurrence: None)
  Receive Date: 20120327
  Receipt Date: 20120322
  Transmission Date: 20120608
  Serious: Yes (Hospitalization)
  Sender: FDA-Public Use
  Company Number: KR-SANOFI-AVENTIS-2012SA019630

PATIENT

DRUGS (3)
  1. LEUCOVORIN CALCIUM [Suspect]
     Indication: COLORECTAL CANCER
     Route: 042
  2. ELOXATIN [Suspect]
     Indication: COLORECTAL CANCER
     Route: 042
  3. FLUOROURACIL [Suspect]
     Indication: COLORECTAL CANCER
     Route: 042

REACTIONS (2)
  - METABOLIC ACIDOSIS [None]
  - COMA [None]
